FAERS Safety Report 6086171-2 (Version None)
Quarter: 2009Q1

REPORT INFORMATION
  Report Type: 
  Country: None (occurrence: None)
  Receive Date: 20090220
  Receipt Date: 20090218
  Transmission Date: 20090719
  Serious: Yes (Death)
  Sender: FDA-Public Use
  Company Number: GR-ABBOTT-09P-066-0558080-00

PATIENT
  Age: 70 Year
  Sex: Male
  Weight: 70 kg

DRUGS (15)
  1. ZEMPLAR [Suspect]
     Indication: HYPERPARATHYROIDISM SECONDARY
     Dosage: DURING HEMODIALYSIS
     Route: 042
     Dates: start: 20081202, end: 20090217
  2. DILATREND [Concomitant]
     Indication: CORONARY ARTERY DISEASE
     Dosage: ONE HALF TABELT TWICE PER DAY
     Route: 048
     Dates: start: 20070401, end: 20090217
  3. FILICINE [Concomitant]
     Indication: RENAL FAILURE CHRONIC
     Route: 048
     Dates: start: 20040601, end: 20090217
  4. FORSENOL [Concomitant]
     Indication: HYPERPHOSPHATAEMIA
     Dosage: 3 TABS IN AM, 4 TABS IN PM
     Route: 048
     Dates: start: 20081101, end: 20090101
  5. RENAGEL [Concomitant]
     Indication: HYPERPHOSPHATAEMIA
     Route: 048
     Dates: start: 20081101, end: 20090101
  6. HEPARIN LEO [Concomitant]
     Indication: ANTICOAGULANT THERAPY
     Route: 042
     Dates: start: 20090101, end: 20090217
  7. NEORECORMON [Concomitant]
     Indication: ANAEMIA
     Route: 042
     Dates: start: 20090201, end: 20090217
  8. NEORECORMON [Concomitant]
  9. VENOFER [Concomitant]
     Indication: ANAEMIA
     Route: 042
     Dates: start: 20080701, end: 20090101
  10. VENOFER [Concomitant]
     Indication: RENAL FAILURE CHRONIC
  11. SUPERAMINE [Concomitant]
     Indication: RENAL FAILURE CHRONIC
     Route: 042
     Dates: start: 20071201, end: 20090217
  12. NEUROBION [Concomitant]
     Indication: RENAL FAILURE CHRONIC
     Route: 042
     Dates: start: 20040601, end: 20090217
  13. BIOTINE [Concomitant]
     Indication: RENAL FAILURE CHRONIC
     Route: 042
     Dates: start: 20040601, end: 20090217
  14. PLAVIX [Concomitant]
     Indication: ANTICOAGULANT THERAPY
     Dosage: 1 TAB DAILY EXCEPT DAYS OF HEMODIALYSIS
     Route: 048
     Dates: start: 20090101, end: 20090217
  15. PARIET [Concomitant]
     Indication: DUODENAL ULCER HAEMORRHAGE
     Dosage: 1 TAB 2X DAILY EXCEPT WITH HEMODIALYSIS
     Dates: start: 20070401, end: 20090217

REACTIONS (3)
  - CARDIAC ARREST [None]
  - DYSPNOEA [None]
  - ORTHOPNOEA [None]
